FAERS Safety Report 8022022-4 (Version None)
Quarter: 2011Q4

REPORT INFORMATION
  Report Type: 
  Country: None (occurrence: None)
  Receive Date: 20111230
  Receipt Date: 20111224
  Transmission Date: 20120403
  Serious: Yes (Other)
  Sender: FDA-Public Use
  Company Number: IPC201112-003267

PATIENT
  Age: 50 Year
  Sex: Female

DRUGS (1)
  1. HYDROXYCHLOROQUINE SULFATE [Suspect]
     Indication: SYSTEMIC LUPUS ERYTHEMATOSUS
     Dosage: 200 MG TWO TIMES DAILY

REACTIONS (5)
  - BLOOD PRESSURE DIASTOLIC DECREASED [None]
  - MITRAL VALVE INCOMPETENCE [None]
  - CARDIAC FAILURE [None]
  - RESTRICTIVE CARDIOMYOPATHY [None]
  - TRICUSPID VALVE INCOMPETENCE [None]
